FAERS Safety Report 6762142 (Version 3)
Quarter: 2013Q1

REPORT INFORMATION
  Report Type: Spontaneous
  Country: US (occurrence: US)
  Receive Date: 20080908
  Receipt Date: 20130130
  Transmission Date: 20140127
  Serious: Yes (Hospitalization)
  Sender: FDA-Public Use
  Company Number: 2008BI022684

PATIENT
  Age: 56 Year
  Sex: Female

DRUGS (2)
  1. AVONEX [Suspect]
     Indication: MULTIPLE SCLEROSIS
     Route: 030
     Dates: start: 19970101
  2. AVONEX [Suspect]
     Indication: MULTIPLE SCLEROSIS
     Route: 030
     Dates: start: 200701

REACTIONS (7)
  - Cerebrovascular accident [Not Recovered/Not Resolved]
  - Fall [Recovered/Resolved]
  - Nerve injury [Recovered/Resolved]
  - Hypotonia [Not Recovered/Not Resolved]
  - Balance disorder [Not Recovered/Not Resolved]
  - Scratch [Recovered/Resolved]
  - Peroneal nerve palsy [Not Recovered/Not Resolved]
